FAERS Safety Report 14902830 (Version 7)
Quarter: 2020Q3

REPORT INFORMATION
  Report Type: Spontaneous
  Country: US (occurrence: US)
  Receive Date: 20180516
  Receipt Date: 20200922
  Transmission Date: 20201102
  Serious: Yes (Other)
  Sender: FDA-Public Use
  Company Number: US-SA-2017SA105967

PATIENT

DRUGS (5)
  1. LANTUS [Suspect]
     Active Substance: INSULIN GLARGINE
     Indication: TYPE 1 DIABETES MELLITUS
     Dosage: 11 IU, QD
     Route: 051
     Dates: start: 2017, end: 2017
  2. HUMULIN N [Concomitant]
     Active Substance: INSULIN HUMAN
     Dosage: UNK
     Route: 065
  3. HUMULIN R [Concomitant]
     Active Substance: INSULIN HUMAN
     Dosage: UNK
     Route: 065
  4. LANTUS [Suspect]
     Active Substance: INSULIN GLARGINE
     Indication: TYPE 2 DIABETES MELLITUS
     Dosage: 8 IU, QD
     Route: 065
     Dates: start: 19900803
  5. LANTUS [Suspect]
     Active Substance: INSULIN GLARGINE
     Dosage: UNK
     Route: 065

REACTIONS (7)
  - Nervousness [Not Recovered/Not Resolved]
  - Illness [Not Recovered/Not Resolved]
  - Diabetes mellitus inadequate control [Unknown]
  - Blood glucose increased [Not Recovered/Not Resolved]
  - Drug ineffective [Unknown]
  - Hypoacusis [Unknown]
  - Fear [Not Recovered/Not Resolved]

NARRATIVE: CASE EVENT DATE: 2017
